FAERS Safety Report 4694439-7 (Version None)
Quarter: 2005Q2

REPORT INFORMATION
  Report Type: 
  Country: None (occurrence: None)
  Receive Date: 20050620
  Receipt Date: 20050607
  Transmission Date: 20051028
  Serious: Yes (Death)
  Sender: FDA-Public Use
  Company Number: US-JNJFOC-20050404231

PATIENT
  Sex: Female
  Weight: 81.19 kg

DRUGS (8)
  1. TRAMADOL HCL [Suspect]
     Indication: OSTEOARTHRITIS
     Dosage: AS NEEDED
     Route: 049
  2. CELEXA [Suspect]
     Indication: DEPRESSION
  3. ACETAMINOPHEN [Concomitant]
     Indication: DRUG USE FOR UNKNOWN INDICATION
     Route: 065
  4. BUSPAR [Concomitant]
     Indication: ANXIETY
  5. ALLOPURINOL [Concomitant]
     Indication: GOUT
  6. VERAPAMIL [Concomitant]
  7. ZANTAC [Concomitant]
  8. ZOCOR [Concomitant]
     Indication: HYPEREXPLEXIA

REACTIONS (1)
  - MULTIPLE DRUG OVERDOSE [None]
